FAERS Safety Report 18340631 (Version 1)
Quarter: 2020Q4

REPORT INFORMATION
  Report Type: Spontaneous
  Country: US (occurrence: US)
  Receive Date: 20201002
  Receipt Date: 20201002
  Transmission Date: 20210113
  Serious: Yes (Other)
  Sender: FDA-Public Use
  Company Number: US-PURDUE-USA-2020-0168600

PATIENT

DRUGS (2)
  1. OXYCODONE HYDROCHLORIDE (SIMILAR TO NDA 22-272) [Suspect]
     Active Substance: OXYCODONE HYDROCHLORIDE
     Indication: FOOT FRACTURE
     Dosage: UNK
     Route: 048
     Dates: start: 2010
  2. OXYCONTIN [Suspect]
     Active Substance: OXYCODONE HYDROCHLORIDE
     Indication: FOOT FRACTURE
     Dosage: UNK
     Route: 048
     Dates: start: 2010

REACTIONS (10)
  - Suicidal ideation [Unknown]
  - Mental disorder [Unknown]
  - Abdominal discomfort [Unknown]
  - Illness [Unknown]
  - Feelings of worthlessness [Unknown]
  - Sleep disorder [Unknown]
  - Loss of libido [Unknown]
  - Depression [Unknown]
  - Pain [Unknown]
  - Drug dependence [Unknown]
